FAERS Safety Report 11234327 (Version 2)
Quarter: 2015Q3

REPORT INFORMATION
  Report Type: Spontaneous
  Country: US (occurrence: US)
  Receive Date: 20150702
  Receipt Date: 20150814
  Transmission Date: 20151125
  Serious: No
  Sender: FDA-Public Use
  Company Number: US-TEVA-574387USA

PATIENT
  Age: 47 Year
  Sex: Female

DRUGS (16)
  1. VENLAFAXINE [Concomitant]
     Active Substance: VENLAFAXINE HYDROCHLORIDE
  2. FENOFIBRATE. [Concomitant]
     Active Substance: FENOFIBRATE
  3. ALPRAZOLAM. [Concomitant]
     Active Substance: ALPRAZOLAM
  4. IBUPROFEN. [Concomitant]
     Active Substance: IBUPROFEN
  5. GABAPENTIN. [Concomitant]
     Active Substance: GABAPENTIN
  6. CLOTRIMAZOLE. [Concomitant]
     Active Substance: CLOTRIMAZOLE
  7. LUMIGAN [Concomitant]
     Active Substance: BIMATOPROST
  8. CHOLESTYRAMINE. [Concomitant]
     Active Substance: CHOLESTYRAMINE
  9. GLYBURIDE. [Concomitant]
     Active Substance: GLYBURIDE
  10. HYDROCODONE BITARTRATE AND ACETAMINOPHEN [Concomitant]
     Active Substance: ACETAMINOPHEN\HYDROCODONE BITARTRATE
     Dosage: 10/325 MG
  11. COPAXONE [Suspect]
     Active Substance: GLATIRAMER ACETATE
     Indication: MULTIPLE SCLEROSIS
     Dosage: 17.1429 MILLIGRAM DAILY;
     Route: 058
     Dates: start: 20150530
  12. FLUCONAZOLE. [Concomitant]
     Active Substance: FLUCONAZOLE
  13. OMEPRAZOLE. [Concomitant]
     Active Substance: OMEPRAZOLE
  14. VITAMIN D [Concomitant]
     Active Substance: CHOLECALCIFEROL
  15. TRAZODONE [Concomitant]
     Active Substance: TRAZODONE HYDROCHLORIDE
  16. DESLORATADINE. [Concomitant]
     Active Substance: DESLORATADINE

REACTIONS (2)
  - Nausea [Not Recovered/Not Resolved]
  - Fatigue [Not Recovered/Not Resolved]

NARRATIVE: CASE EVENT DATE: 20150530
